FAERS Safety Report 9309001 (Version 1)
Quarter: 2013Q2

REPORT INFORMATION
  Report Type: Spontaneous
  Country: US (occurrence: US)
  Receive Date: 20130524
  Receipt Date: 20130524
  Transmission Date: 20140414
  Serious: Yes (Hospitalization)
  Sender: FDA-Public Use
  Company Number: US-009507513-1305USA013167

PATIENT
  Age: 20 Year
  Sex: Female

DRUGS (5)
  1. SINGULAIR [Suspect]
     Indication: ASTHMA
     Dosage: 10 MG, QD
     Route: 048
     Dates: start: 20130518
  2. SOLU-MEDROL [Concomitant]
  3. XOPENEX [Concomitant]
  4. ZITHROMAX [Concomitant]
  5. PRENATAL VITAMINS [Concomitant]

REACTIONS (1)
  - Asthma [Recovering/Resolving]
